FAERS Safety Report 16832765 (Version 2)
Quarter: 2019Q4

REPORT INFORMATION
  Report Type: Spontaneous
  Country: AU (occurrence: AU)
  Receive Date: 20190920
  Receipt Date: 20191027
  Transmission Date: 20200122
  Serious: Yes (Other)
  Sender: FDA-Public Use
  Company Number: AU-BIOVITRUM-2019AU2923

PATIENT
  Age: 19 Year
  Sex: Female

DRUGS (8)
  1. STELARA [Suspect]
     Active Substance: USTEKINUMAB
  2. METHOTREXATE. [Suspect]
     Active Substance: METHOTREXATE
  3. COLCHICINE. [Suspect]
     Active Substance: COLCHICINE
  4. COSENTYX [Suspect]
     Active Substance: SECUKINUMAB
  5. CIMZIA [Suspect]
     Active Substance: CERTOLIZUMAB PEGOL
  6. KINERET [Suspect]
     Active Substance: ANAKINRA
     Indication: AUTOINFLAMMATORY DISEASE
     Dates: start: 20181210, end: 20190107
  7. SULFASALAZINE. [Concomitant]
     Active Substance: SULFASALAZINE
  8. MICROGYNON [Concomitant]
     Active Substance: ETHINYL ESTRADIOL\LEVONORGESTREL ACETATE

REACTIONS (11)
  - Gamma-glutamyltransferase increased [Unknown]
  - Treatment failure [Unknown]
  - Vertigo [Unknown]
  - Vitamin D decreased [Unknown]
  - Axial spondyloarthritis [Unknown]
  - Barotrauma [Unknown]
  - Diarrhoea [Unknown]
  - Autoinflammatory disease [Unknown]
  - Hyperparathyroidism secondary [Unknown]
  - Sacroiliitis [Unknown]
  - Nausea [Unknown]

NARRATIVE: CASE EVENT DATE: 20171003
